FAERS Safety Report 7499463-7 (Version None)
Quarter: 2011Q2

REPORT INFORMATION
  Report Type: 
  Country: None (occurrence: None)
  Receive Date: 20110524
  Receipt Date: 20110511
  Transmission Date: 20111010
  Serious: Yes (Other)
  Sender: FDA-Public Use
  Company Number: PHHY2011JP08720

PATIENT
  Sex: Female

DRUGS (10)
  1. EC DOPARL [Concomitant]
     Indication: PARKINSONISM
     Dosage: 2 DF, UNK
     Route: 048
  2. ROCALTROL [Suspect]
     Indication: OSTEOPOROSIS
     Dosage: 1 UG, UNK
     Route: 048
     Dates: end: 20110202
  3. ENBREL [Concomitant]
     Indication: RHEUMATOID ARTHRITIS
     Dosage: 25 MG, UNK
     Route: 058
     Dates: start: 20101005
  4. MAGMITT KENEI [Suspect]
     Indication: CONSTIPATION
     Dosage: 1000 MG, UNK
     Route: 048
     Dates: end: 20110202
  5. EXFORGE [Suspect]
     Indication: HYPERTENSION
     Dosage: 1 DF, DAILY
     Route: 048
     Dates: start: 20110108, end: 20110202
  6. CALCIUM CARBONATE [Suspect]
     Indication: CONSTIPATION
     Dosage: 1000 MG, UNK
     Route: 048
  7. VESICARE [Concomitant]
     Indication: HYPERTONIC BLADDER
     Dosage: 10.5 MG, UNK
     Route: 048
  8. FOLIC ACID [Concomitant]
     Indication: PERNICIOUS ANAEMIA
     Dosage: 5 MG, UNK
     Route: 048
  9. DONEPEZIL HYDROCHLORIDE [Concomitant]
     Indication: DEMENTIA ALZHEIMER'S TYPE
     Dosage: 5 MG, UNK
     Route: 048
  10. FAMOTIDINE [Concomitant]
     Indication: GASTRITIS
     Dosage: 40 MG, UNK
     Route: 048

REACTIONS (2)
  - HYPERCALCAEMIA [None]
  - RENAL FAILURE ACUTE [None]
